FAERS Safety Report 14480016 (Version 1)
Quarter: 2018Q1

REPORT INFORMATION
  Report Type: Spontaneous
  Country: US (occurrence: US)
  Receive Date: 20180202
  Receipt Date: 20180202
  Transmission Date: 20180509
  Serious: Yes (Hospitalization)
  Sender: FDA-Public Use
  Company Number: US-JNJFOC-20180139351

PATIENT
  Age: 59 Year
  Sex: Male

DRUGS (4)
  1. GLUCOTROL [Concomitant]
     Active Substance: GLIPIZIDE
     Indication: PRODUCT USED FOR UNKNOWN INDICATION
     Route: 048
  2. INVOKANA [Suspect]
     Active Substance: CANAGLIFLOZIN
     Indication: PRODUCT USED FOR UNKNOWN INDICATION
     Route: 048
  3. LANTUS [Concomitant]
     Active Substance: INSULIN GLARGINE
     Indication: PRODUCT USED FOR UNKNOWN INDICATION
     Dosage: INJECTION OF 80 UNITS IN MORNING (AM) WITH BREAKFAST AND 20 UNITS IN AFTERNOON (PM).
     Route: 065
  4. NOVOLOG [Concomitant]
     Active Substance: INSULIN ASPART
     Indication: PRODUCT USED FOR UNKNOWN INDICATION
     Dosage: 10 UNITS INTO THE SKIN (SUBCUTANEOUS) THREE TIMES  ADAY BEFORE MEALS
     Route: 058

REACTIONS (3)
  - Diabetic foot [Recovering/Resolving]
  - Osteomyelitis [Recovering/Resolving]
  - Foot amputation [Recovering/Resolving]

NARRATIVE: CASE EVENT DATE: 201603
